FAERS Safety Report 9618837 (Version 3)
Quarter: 2014Q1

REPORT INFORMATION
  Report Type: Spontaneous
  Country: IT (occurrence: IT)
  Receive Date: 20131014
  Receipt Date: 20140123
  Transmission Date: 20141002
  Serious: Yes (Hospitalization)
  Sender: FDA-Public Use
  Company Number: IT-ROCHE-1288216

PATIENT
  Age: 67 Year
  Sex: Female
  Weight: 88 kg

DRUGS (11)
  1. COPEGUS [Suspect]
     Indication: HEPATIC CIRRHOSIS
     Route: 048
     Dates: start: 20130726, end: 20130903
  2. COPEGUS [Suspect]
     Route: 048
  3. COPEGUS [Suspect]
     Route: 048
  4. INCIVO [Suspect]
     Indication: HEPATIC CIRRHOSIS
     Route: 048
     Dates: start: 20130726, end: 20130927
  5. TRIATEC (ITALY) [Suspect]
     Indication: HYPERTENSION
     Route: 048
     Dates: end: 20130925
  6. PEGASYS [Concomitant]
     Indication: HEPATIC CIRRHOSIS
     Route: 058
     Dates: start: 20130726, end: 20131003
  7. CONCOR [Concomitant]
     Indication: HYPERTENSION
     Route: 048
     Dates: end: 20131003
  8. DELORAZEPAM [Concomitant]
     Indication: INSOMNIA
     Route: 048
     Dates: end: 20131003
  9. ESOMEPRAZOLE [Concomitant]
     Indication: ABDOMINAL PAIN
     Route: 048
     Dates: end: 20130920
  10. PLASIL [Concomitant]
     Indication: PROPHYLAXIS OF NAUSEA AND VOMITING
     Route: 048
     Dates: end: 20130920
  11. PLASIL [Concomitant]
     Indication: PROPHYLAXIS OF NAUSEA AND VOMITING

REACTIONS (4)
  - Presyncope [Recovering/Resolving]
  - Anaemia [Unknown]
  - Eczema [Recovering/Resolving]
  - Pyrexia [Recovered/Resolved]
